FAERS Safety Report 13853242 (Version 3)
Quarter: 2017Q4

REPORT INFORMATION
  Report Type: Spontaneous
  Country: US (occurrence: US)
  Receive Date: 20170810
  Receipt Date: 20171020
  Transmission Date: 20180320
  Serious: Yes (Other)
  Sender: FDA-Public Use
  Company Number: US-ALVOGEN-2017-ALVOGEN-093007

PATIENT
  Age: 4 Year
  Sex: Male

DRUGS (1)
  1. CLINDAMYCIN. [Suspect]
     Active Substance: CLINDAMYCIN
     Indication: INFECTION
     Dosage: 75MG/5ML
     Route: 048
     Dates: start: 20170515, end: 20170517

REACTIONS (7)
  - Abdominal pain [Unknown]
  - Muscle twitching [Unknown]
  - Heart rate increased [Unknown]
  - Vomiting [Recovered/Resolved]
  - Chills [Unknown]
  - Hallucination [Recovered/Resolved]
  - Pyrexia [Recovered/Resolved]
